FAERS Safety Report 11888942 (Version 4)
Quarter: 2016Q2

REPORT INFORMATION
  Report Type: Spontaneous
  Country: US (occurrence: US)
  Receive Date: 20160105
  Receipt Date: 20160520
  Transmission Date: 20160815
  Serious: No
  Sender: FDA-Public Use
  Company Number: US-PFIZER INC-2015438825

PATIENT
  Age: 78 Year
  Sex: Male
  Weight: 134.7 kg

DRUGS (22)
  1. POLYETHYLENE GLYCOL [Concomitant]
     Active Substance: POLYETHYLENE GLYCOLS
     Dosage: TAKE 17 G BY MOUTH, 3X/DAY (MIX IN 4-8 OUNCES OF WATER)
     Route: 048
     Dates: start: 20150708
  2. REMERON [Concomitant]
     Active Substance: MIRTAZAPINE
     Dosage: 45 MG, (NIGHTLY)
     Route: 048
  3. INFLUENZA TRI (LLV3) 4+YRS PF [Concomitant]
     Route: 030
     Dates: start: 20150924
  4. TAMSULOSIN [Concomitant]
     Active Substance: TAMSULOSIN
     Dosage: 0.4 MG, DAILY
  5. METOPROLOL. [Concomitant]
     Active Substance: METOPROLOL
     Dosage: 25 MG, UNK
  6. LYRICA [Suspect]
     Active Substance: PREGABALIN
     Indication: BACK PAIN
  7. LIPITOR [Concomitant]
     Active Substance: ATORVASTATIN CALCIUM
     Dosage: 40 MG, DAILY
     Route: 048
  8. PNEUMOCOCCAL VACCINE POLYVALENT NOS [Concomitant]
     Active Substance: PNEUMOCOCCAL VACCINE POLYVALENT
     Dates: start: 20110101
  9. LYRICA [Suspect]
     Active Substance: PREGABALIN
     Indication: DIABETES MELLITUS
     Dosage: 75 MG, 2X/DAY
     Route: 048
     Dates: start: 20150917
  10. AMBIEN [Concomitant]
     Active Substance: ZOLPIDEM TARTRATE
     Dosage: 10 MG, AS NEEDED (AT NIGHT)
     Dates: start: 20150917
  11. ECOTRIN [Concomitant]
     Active Substance: ASPIRIN
     Dosage: 81 MG, DAILY
     Route: 048
     Dates: start: 20151026, end: 20151124
  12. LASIX [Concomitant]
     Active Substance: FUROSEMIDE
     Dosage: 40 MG, 2X/DAY
     Route: 048
     Dates: start: 20151118, end: 20151124
  13. LYRICA [Suspect]
     Active Substance: PREGABALIN
     Indication: DIABETIC NEUROPATHY
     Dosage: 75 MG, 2X/DAY
     Route: 048
     Dates: start: 20160218
  14. LYRICA [Suspect]
     Active Substance: PREGABALIN
     Indication: PAIN
  15. HIGH DOSE FLU [Concomitant]
     Dosage: UNK
     Dates: start: 20141215
  16. PNEUMOCOCCAL POLYSACCHARIDE 23 [Concomitant]
     Dosage: UNK
     Route: 030
     Dates: start: 20150924
  17. ZOSTER [Concomitant]
     Dates: start: 20141208
  18. MELOXICAM. [Concomitant]
     Active Substance: MELOXICAM
     Dosage: 15 MG, 1X/DAY
     Route: 048
  19. CYMBALTA [Concomitant]
     Active Substance: DULOXETINE HYDROCHLORIDE
     Dosage: 60 MG, DAILY
     Route: 048
     Dates: start: 20150917, end: 20151124
  20. METFORMIN [Concomitant]
     Active Substance: METFORMIN HYDROCHLORIDE
     Dosage: 1000 MG, 2X/DAY
  21. HYZAAR [Concomitant]
     Active Substance: HYDROCHLOROTHIAZIDE\LOSARTAN POTASSIUM
     Dosage: LOSARTAN 100MG-HYDROCHLOROTHIAZIDE 25MG (1 TABLET BY MOUTH DAILY)
     Route: 048
     Dates: start: 20151118
  22. LASIX [Concomitant]
     Active Substance: FUROSEMIDE
     Dosage: 80 MG, 2X/DAY
     Route: 048

REACTIONS (10)
  - Muscular weakness [Unknown]
  - Arthralgia [Unknown]
  - Depression [Unknown]
  - Drug ineffective [Not Recovered/Not Resolved]
  - Pollakiuria [Unknown]
  - Cardiac disorder [Unknown]
  - Dyspnoea [Unknown]
  - Dyspnoea paroxysmal nocturnal [Unknown]
  - Somnolence [Unknown]
  - Weight increased [Unknown]
